FAERS Safety Report 8508118-9 (Version None)
Quarter: 2012Q3

REPORT INFORMATION
  Report Type: 
  Country: None (occurrence: None)
  Receive Date: 20120709
  Receipt Date: 20120709
  Transmission Date: 20120928
  Serious: No
  Sender: FDA-Public Use
  Company Number: None

PATIENT

DRUGS (2)
  1. GENERIC LIDOCAINE OINTMENT LIDOCAINE OINTMENT [Suspect]
     Dosage: OINTMENT TOPICAL 5% 60 GRAMS
     Route: 061
  2. LIDOCAINE 5% PATCHES [Suspect]
     Dosage: PATCH TOPICAL 5 %  #90
     Route: 061

REACTIONS (1)
  - MEDICATION ERROR [None]
